FAERS Safety Report 24354649 (Version 1)
Quarter: 2024Q3

REPORT INFORMATION
  Report Type: Spontaneous
  Country: IT (occurrence: IT)
  Receive Date: 20240923
  Receipt Date: 20240923
  Transmission Date: 20241017
  Serious: Yes (Other)
  Sender: NOVARTIS
  Company Number: IT-SANDOZ-SDZ2024IT075649

PATIENT
  Age: 10 Year
  Sex: Female

DRUGS (15)
  1. CANAKINUMAB [Suspect]
     Active Substance: CANAKINUMAB
     Indication: Still^s disease
     Dosage: 4 MG/KG (150 MG)/4 WEEK
     Route: 065
     Dates: start: 202107
  2. CANAKINUMAB [Suspect]
     Active Substance: CANAKINUMAB
     Indication: Haemophagocytic lymphohistiocytosis
  3. CYCLOSPORINE [Suspect]
     Active Substance: CYCLOSPORINE
     Indication: Still^s disease
     Dosage: 2-4 MG/KG/DAY ORALLY OR 1-2 MG/KG/DAY I.V.
     Route: 065
     Dates: start: 2017
  4. CYCLOSPORINE [Suspect]
     Active Substance: CYCLOSPORINE
     Indication: Haemophagocytic lymphohistiocytosis
  5. AMLODIPINE [Suspect]
     Active Substance: AMLODIPINE BESYLATE
     Indication: Hypertension
     Dosage: UNK
     Route: 065
  6. BISOPROLOL [Suspect]
     Active Substance: BISOPROLOL\BISOPROLOL FUMARATE
     Indication: Hypertension
     Dosage: UNK
     Route: 065
  7. METHOTREXATE [Suspect]
     Active Substance: METHOTREXATE
     Indication: Still^s disease
     Dosage: UNK
     Route: 065
  8. METHOTREXATE [Suspect]
     Active Substance: METHOTREXATE
     Indication: Haemophagocytic lymphohistiocytosis
  9. TOCILIZUMAB [Suspect]
     Active Substance: TOCILIZUMAB
     Indication: Still^s disease
     Dosage: 12 MG/KG/2 WEEKS
     Route: 042
     Dates: start: 2017
  10. TOCILIZUMAB [Suspect]
     Active Substance: TOCILIZUMAB
     Indication: Haemophagocytic lymphohistiocytosis
  11. BARICITINIB [Suspect]
     Active Substance: BARICITINIB
     Indication: Still^s disease
     Dosage: 4 MG/DAY
     Route: 065
     Dates: start: 202204
  12. BARICITINIB [Suspect]
     Active Substance: BARICITINIB
     Indication: Haemophagocytic lymphohistiocytosis
  13. ANAKINRA [Suspect]
     Active Substance: ANAKINRA
     Indication: Still^s disease
     Dosage: 2 TO 5 MG/KG/DAY UP TO 100 MG/DAY
     Route: 065
     Dates: start: 202011, end: 202107
  14. ANAKINRA [Suspect]
     Active Substance: ANAKINRA
     Indication: Haemophagocytic lymphohistiocytosis
  15. PREDNISONE [Suspect]
     Active Substance: PREDNISONE
     Indication: Haemophagocytic lymphohistiocytosis
     Dosage: 0.3 MG/KG, QD
     Route: 065

REACTIONS (9)
  - Haemophagocytic lymphohistiocytosis [Recovering/Resolving]
  - Posterior reversible encephalopathy syndrome [Unknown]
  - Seizure [Unknown]
  - Papilloma viral infection [Recovered/Resolved]
  - Infection [Unknown]
  - Otitis media acute [Recovering/Resolving]
  - Drug resistance [Unknown]
  - Therapeutic product effect incomplete [Unknown]
  - Product use in unapproved indication [Unknown]
